FAERS Safety Report 5400202-1 (Version None)
Quarter: 2007Q3

REPORT INFORMATION
  Report Type: 
  Country: None (occurrence: None)
  Receive Date: 20070725
  Receipt Date: 20070713
  Transmission Date: 20080115
  Serious: Yes (Death)
  Sender: FDA-Public Use
  Company Number: GXKR2007GB06080

PATIENT
  Age: 78 Year
  Sex: Male
  Weight: 72 kg

DRUGS (2)
  1. WARFARIN SODIUM [Suspect]
     Dosage: ORAL
     Route: 048
     Dates: end: 20070708
  2. CLOPIDOGREL [Suspect]
     Dosage: 75 MG, ORAL
     Route: 048
     Dates: end: 20070708

REACTIONS (1)
  - HAEMORRHAGIC STROKE [None]
